FAERS Safety Report 15546667 (Version 1)
Quarter: 2018Q4

REPORT INFORMATION
  Report Type: Spontaneous
  Country: FR (occurrence: FR)
  Receive Date: 20181024
  Receipt Date: 20181024
  Transmission Date: 20190205
  Serious: Yes (Hospitalization, Disabling)
  Sender: FDA-Public Use
  Company Number: FR-PROVELL PHARMACEUTICALS-2056969

PATIENT
  Age: 31 Year
  Sex: Female

DRUGS (1)
  1. EUTHYROX [Suspect]
     Active Substance: LEVOTHYROXINE SODIUM
     Indication: POST PROCEDURAL HYPOTHYROIDISM
     Dates: start: 201704, end: 20171002

REACTIONS (16)
  - Stress [None]
  - Discomfort [None]
  - Blood thyroid stimulating hormone decreased [None]
  - Thyroxine increased [None]
  - Arthralgia [Recovered/Resolved]
  - Anxiety [Recovered/Resolved]
  - Red blood cell sedimentation rate increased [None]
  - Blood creatine phosphokinase increased [None]
  - Loss of personal independence in daily activities [Recovered/Resolved]
  - Vertigo [Recovered/Resolved]
  - Asthenia [Recovered/Resolved]
  - Alopecia [None]
  - Gait disturbance [None]
  - Fatigue [None]
  - Myalgia [Recovered/Resolved]
  - Weight increased [None]

NARRATIVE: CASE EVENT DATE: 2017
